FAERS Safety Report 6895339-4 (Version None)
Quarter: 2010Q3

REPORT INFORMATION
  Report Type: 
  Country: None (occurrence: None)
  Receive Date: 20100802
  Receipt Date: 20100728
  Transmission Date: 20110219
  Serious: Yes (Hospitalization)
  Sender: FDA-Public Use
  Company Number: US-JNJCH-A110546

PATIENT
  Sex: Male

DRUGS (3)
  1. CETIRIZINE HYDROCHLORIDE [Suspect]
     Indication: HYPERSENSITIVITY
     Dosage: DAILY DOSE:10-FREQ:DAILY
     Route: 048
  2. BENADRYL [Interacting]
     Indication: HYPERSENSITIVITY
     Dosage: TEXT:UNSPECIFIED
     Route: 048
     Dates: start: 20010507, end: 20010507
  3. IMITREX [Concomitant]
     Route: 065

REACTIONS (2)
  - CONVULSION [None]
  - DRUG INTERACTION [None]
